FAERS Safety Report 14151260 (Version 3)
Quarter: 2018Q1

REPORT INFORMATION
  Report Type: Spontaneous
  Country: NL (occurrence: NL)
  Receive Date: 20171102
  Receipt Date: 20180102
  Transmission Date: 20180508
  Serious: Yes (Other)
  Sender: FDA-Public Use
  Company Number: NL-ROCHE-2016009

PATIENT
  Age: 54 Year
  Sex: Female
  Weight: 92 kg

DRUGS (8)
  1. CELECOXIB. [Concomitant]
     Active Substance: CELECOXIB
     Dosage: 2 X PER DAG 100 MG
     Route: 048
     Dates: start: 20171008
  2. NAPROXEN. [Concomitant]
     Active Substance: NAPROXEN
     Dosage: 1 X PER DAG 250 MG EENMALIG GIFT
     Route: 048
     Dates: start: 20171015
  3. PARACETAMOL [Concomitant]
     Active Substance: ACETAMINOPHEN
     Route: 048
     Dates: start: 20171017
  4. AMOXICILLINE [Concomitant]
     Active Substance: AMOXICILLIN
     Dosage: 6 X PER DAG 2000 MG
     Route: 048
     Dates: start: 20171008
  5. ONDANSETRON [Concomitant]
     Active Substance: ONDANSETRON
     Dosage: ZO NODIG 4X PER DAG 4MG
     Route: 048
     Dates: start: 20171017
  6. PIRITRAMIDE [Concomitant]
     Active Substance: PIRITRAMIDE
     Dosage: ZO NODIG 4X PER DAG 10 MG
     Route: 065
     Dates: start: 20171017
  7. CEFTRIAXONE. [Suspect]
     Active Substance: CEFTRIAXONE
     Indication: MENINGITIS BACTERIAL
     Route: 042
     Dates: start: 20171008, end: 20171017
  8. MORFINE HCL [Concomitant]
     Dosage: ZO NODIG 4X PER DAG 5MG INDIEN PARACETAMOL ONVOLDO
     Route: 048
     Dates: start: 20171015

REACTIONS (1)
  - Renal failure [Recovered/Resolved]

NARRATIVE: CASE EVENT DATE: 20171015
